FAERS Safety Report 6607417-5 (Version None)
Quarter: 2010Q1

REPORT INFORMATION
  Report Type: 
  Country: None (occurrence: None)
  Receive Date: 20100301
  Receipt Date: 20100219
  Transmission Date: 20100710
  Serious: Yes (Other)
  Sender: FDA-Public Use
  Company Number: US-ELI_LILLY_AND_COMPANY-US200811004515

PATIENT
  Sex: Male
  Weight: 81.9 kg

DRUGS (11)
  1. GEMCITABINE HCL [Suspect]
     Indication: TRANSITIONAL CELL CARCINOMA
     Dosage: 1000 MG/M2, OTHER
     Route: 042
     Dates: start: 20081022, end: 20081029
  2. GEMCITABINE HCL [Suspect]
     Dosage: 1000 MG/M2, OTHER
     Route: 042
     Dates: start: 20081128, end: 20081204
  3. CISPLATIN [Suspect]
     Indication: TRANSITIONAL CELL CARCINOMA
     Dosage: 70 MG/M2, OTHER
     Route: 042
     Dates: start: 20081022, end: 20081022
  4. CISPLATIN [Suspect]
     Dosage: 70 MG/M2, OTHER
     Route: 042
     Dates: start: 20081128, end: 20081128
  5. MULTI-VITAMIN [Concomitant]
     Dosage: UNK, UNK
  6. ASPIRIN [Concomitant]
     Dosage: 81 MG, DAILY (1/D)
  7. ZOFRAN [Concomitant]
     Indication: NAUSEA
     Dosage: 8 MG, AS NEEDED
     Route: 048
  8. COMPAZINE [Concomitant]
     Indication: NAUSEA
     Dosage: 10 MG, AS NEEDED
     Route: 048
  9. PERCOCET [Concomitant]
     Indication: CHEST PAIN
     Dosage: 325 MG, AS NEEDED
     Route: 048
  10. NORMAL SALINE [Concomitant]
     Dosage: 1 LITER, UNK
     Route: 042
     Dates: start: 20081029, end: 20081029
  11. CIPROFLOXACIN [Concomitant]
     Dosage: 500 MG, 2/D
     Route: 048
     Dates: start: 20081029

REACTIONS (2)
  - PLATELET COUNT DECREASED [None]
  - RENAL FAILURE ACUTE [None]
